FAERS Safety Report 11627317 (Version 1)
Quarter: 2015Q4

REPORT INFORMATION
  Report Type: Report from Study
  Country: US (occurrence: US)
  Receive Date: 20151013
  Receipt Date: 20151013
  Transmission Date: 20160304
  Serious: No
  Sender: FDA-Public Use
  Company Number: US-AMGEN-USASL2015079984

PATIENT
  Sex: Female

DRUGS (9)
  1. HERCEPTIN [Suspect]
     Active Substance: TRASTUZUMAB
     Indication: OVARIAN CANCER
     Dosage: MAINTENENCE DOSE (180 MG, 1 IN 1 WK)
     Route: 042
  2. HERCEPTIN [Suspect]
     Active Substance: TRASTUZUMAB
     Indication: MALIGNANT MELANOMA
  3. TOPOTECAN [Concomitant]
     Active Substance: TOPOTECAN\TOPOTECAN HYDROCHLORIDE
     Dosage: 2 MG, UNK
  4. NAVELBINE [Concomitant]
     Active Substance: VINORELBINE TARTRATE
     Dosage: 500 MG, UNK
  5. HERCEPTIN [Suspect]
     Active Substance: TRASTUZUMAB
     Indication: BREAST CANCER METASTATIC
     Dosage: LOADING DOSE (360 MG, 1 IN 1 WK)
     Route: 042
     Dates: start: 19990721
  6. NAVELBINE [Concomitant]
     Active Substance: VINORELBINE TARTRATE
     Dosage: 50 MG, UNK
     Route: 065
  7. NAVELBINE [Concomitant]
     Active Substance: VINORELBINE TARTRATE
     Dosage: 40 MG, UNK
     Route: 065
  8. NEUPOGEN [Suspect]
     Active Substance: FILGRASTIM
     Indication: PRODUCT USED FOR UNKNOWN INDICATION
     Dosage: 40 MG, UNK
     Route: 065
  9. GEMZAR [Concomitant]
     Active Substance: GEMCITABINE HYDROCHLORIDE
     Dosage: 2 MG, UNK

REACTIONS (6)
  - Disease progression [Unknown]
  - Nausea [Unknown]
  - Dysuria [Unknown]
  - Pain in extremity [Unknown]
  - Abdominal pain [Unknown]
  - Toxicity to various agents [Unknown]
